FAERS Safety Report 6913041-7 (Version None)
Quarter: 2010Q3

REPORT INFORMATION
  Report Type: 
  Country: None (occurrence: None)
  Receive Date: 20100806
  Receipt Date: 20090616
  Transmission Date: 20110219
  Serious: No
  Sender: FDA-Public Use
  Company Number: US-PFIZER INC-2005104967

PATIENT
  Sex: Female
  Weight: 77.1 kg

DRUGS (9)
  1. DETROL LA [Suspect]
     Indication: HYPERTONIC BLADDER
     Dosage: 4 MG, 1X/DAY
     Route: 048
  2. FOSAMAX [Concomitant]
     Indication: OSTEOPOROSIS
     Route: 048
  3. NEURONTIN [Concomitant]
     Indication: NEUROPATHY PERIPHERAL
     Route: 048
  4. CELEBREX [Concomitant]
     Indication: OSTEOARTHRITIS
     Route: 048
  5. VITAMIN B-12 [Concomitant]
     Route: 060
  6. CENTRUM [Concomitant]
     Route: 048
  7. FISH OIL [Concomitant]
     Route: 048
     Dates: start: 20050101
  8. LIPITOR [Concomitant]
     Indication: BLOOD CHOLESTEROL INCREASED
     Route: 048
  9. ZETIA [Concomitant]
     Route: 048

REACTIONS (3)
  - DRUG EFFECT DECREASED [None]
  - DYSURIA [None]
  - FLUID RETENTION [None]
